FAERS Safety Report 5232805-1 (Version None)
Quarter: 2007Q1

REPORT INFORMATION
  Report Type: 
  Country: None (occurrence: None)
  Receive Date: 20070206
  Receipt Date: 20070206
  Transmission Date: 20070707
  Serious: Yes (Other)
  Sender: FDA-Public Use
  Company Number: None

PATIENT
  Age: 47 Year
  Sex: Female
  Weight: 93.441 kg

DRUGS (1)
  1. ISOSORBIDE GIVEN ORALLY TO TAKE W/WATER IN THE HOSPITAL, DONT KNOW DET [Suspect]
     Indication: ANGINA UNSTABLE
     Dosage: IN THE HOSPITAL, DONT KNOW DET   ONCE
     Dates: start: 20070131, end: 20070131

REACTIONS (1)
  - HEADACHE [None]
